FAERS Safety Report 8202586-8 (Version None)
Quarter: 2012Q1

REPORT INFORMATION
  Report Type: 
  Country: None (occurrence: None)
  Receive Date: 20120312
  Receipt Date: 20120301
  Transmission Date: 20120608
  Serious: Yes (Other)
  Sender: FDA-Public Use
  Company Number: HU-FRI-1000028967

PATIENT
  Sex: Female
  Weight: 63 kg

DRUGS (6)
  1. XANAX [Concomitant]
     Dosage: 0.5 MG
     Route: 048
     Dates: start: 20110601, end: 20110901
  2. ESCITALOPRAM [Suspect]
     Dosage: 15 MG
     Route: 048
     Dates: start: 20110601, end: 20120228
  3. BISOPROLOL FUMARATE [Concomitant]
     Dosage: 1.25 MG
     Route: 048
     Dates: start: 20110629
  4. XANAX [Concomitant]
     Indication: PANIC DISORDER
     Dosage: 1 MG
     Route: 048
     Dates: start: 20110131, end: 20110601
  5. ESCITALOPRAM [Suspect]
     Indication: PANIC DISORDER
     Dosage: 10 MG
     Route: 048
     Dates: start: 20110131, end: 20110601
  6. ESCITALOPRAM [Suspect]
     Dosage: 10 MG
     Route: 048
     Dates: start: 20120229

REACTIONS (1)
  - VENTRICULAR EXTRASYSTOLES [None]
